FAERS Safety Report 17126229 (Version 1)
Quarter: 2019Q4

REPORT INFORMATION
  Report Type: Spontaneous
  Country: HR (occurrence: HR)
  Receive Date: 20191209
  Receipt Date: 20191209
  Transmission Date: 20200122
  Serious: Yes (Death, Hospitalization, Other)
  Sender: FDA-Public Use
  Company Number: HR-B.I. PHARMACEUTICALS,INC./RIDGEFIELD-2019-BI-118379

PATIENT
  Age: 75 Year
  Sex: Male

DRUGS (4)
  1. TEOLIN [Concomitant]
     Indication: PRODUCT USED FOR UNKNOWN INDICATION
     Route: 065
     Dates: start: 201709
  2. CONTROLOC [PANTOPRAZOLE SODIUM SESQUIHYDRATE] [Concomitant]
     Indication: PRODUCT USED FOR UNKNOWN INDICATION
     Route: 065
     Dates: start: 201709
  3. OFEV [Suspect]
     Active Substance: NINTEDANIB
     Indication: IDIOPATHIC PULMONARY FIBROSIS
     Route: 065
     Dates: start: 20170608
  4. MEDROL [METHYLPREDNISOLONE ACETATE] [Concomitant]
     Active Substance: METHYLPREDNISOLONE ACETATE
     Indication: IDIOPATHIC PULMONARY FIBROSIS
     Route: 065

REACTIONS (4)
  - Idiopathic pulmonary fibrosis [Unknown]
  - Death [Fatal]
  - Idiopathic pulmonary fibrosis [Unknown]
  - Idiopathic pulmonary fibrosis [Unknown]

NARRATIVE: CASE EVENT DATE: 201709
